FAERS Safety Report 19862655 (Version 1)
Quarter: 2021Q3

REPORT INFORMATION
  Report Type: Spontaneous
  Country: US (occurrence: US)
  Receive Date: 20210921
  Receipt Date: 20210921
  Transmission Date: 20211014
  Serious: Yes (Other)
  Sender: FDA-Public Use
  Company Number: US-PURDUE-USA-2020-0284431

PATIENT
  Sex: Male

DRUGS (3)
  1. HYDROCODONE BITARTRATE AND ACETAMINOPHEN [Suspect]
     Active Substance: ACETAMINOPHEN\HYDROCODONE BITARTRATE
     Indication: PRODUCT USED FOR UNKNOWN INDICATION
     Dosage: UNKNOWN
     Route: 048
  2. OXYCONTIN [Suspect]
     Active Substance: OXYCODONE HYDROCHLORIDE
     Indication: PRODUCT USED FOR UNKNOWN INDICATION
     Dosage: UNKNOWN
     Route: 048
  3. OXYCODONE/ ACETAMINOPHEN TABLETS [Suspect]
     Active Substance: ACETAMINOPHEN\OXYCODONE HYDROCHLORIDE
     Indication: PRODUCT USED FOR UNKNOWN INDICATION
     Dosage: UNKNOWN
     Route: 048

REACTIONS (17)
  - Mydriasis [Unknown]
  - Yawning [Unknown]
  - Judgement impaired [Unknown]
  - Fall [Unknown]
  - Drug dependence [Unknown]
  - Dizziness [Unknown]
  - Somnolence [Unknown]
  - Confusional state [Unknown]
  - Pruritus [Unknown]
  - Frustration tolerance decreased [Unknown]
  - Blindness [Unknown]
  - Hyporeflexia [Unknown]
  - Emotional distress [Unknown]
  - Constipation [Unknown]
  - Rhinorrhoea [Unknown]
  - Dyspnoea [Unknown]
  - Pain [Unknown]
